FAERS Safety Report 7864518-1 (Version None)
Quarter: 2011Q4

REPORT INFORMATION
  Report Type: 
  Country: None (occurrence: None)
  Receive Date: 20111028
  Receipt Date: 20111024
  Transmission Date: 20120403
  Serious: Yes (Hospitalization, Other)
  Sender: FDA-Public Use
  Company Number: US-PFIZER INC-2011092723

PATIENT
  Sex: Male

DRUGS (4)
  1. CHANTIX [Suspect]
     Indication: SMOKING CESSATION THERAPY
     Dosage: UNK, STARTER PACK
     Dates: start: 20090128, end: 20090401
  2. DEPAKOTE [Concomitant]
     Indication: MANIA
     Dosage: UNK
     Dates: start: 20080301, end: 20090401
  3. PALIPERIDONE [Concomitant]
     Indication: SCHIZOPHRENIA
     Dosage: UNK
     Dates: start: 20080301, end: 20090401
  4. COGENTIN [Concomitant]
     Dosage: UNK
     Dates: start: 20080301, end: 20090401

REACTIONS (3)
  - SUICIDE ATTEMPT [None]
  - AGGRESSION [None]
  - PSYCHOTIC DISORDER [None]
